FAERS Safety Report 15585522 (Version 5)
Quarter: 2019Q2

REPORT INFORMATION
  Report Type: Report from Study
  Country: US (occurrence: US)
  Receive Date: 20181105
  Receipt Date: 20190429
  Transmission Date: 20190711
  Serious: Yes (Congenital Anomaly, Other)
  Sender: FDA-Public Use
  Company Number: US-VIIV HEALTHCARE LIMITED-US2018GSK199829

PATIENT
  Sex: Female

DRUGS (4)
  1. ZIDOVUDINE. [Suspect]
     Active Substance: ZIDOVUDINE
     Dosage: 1 MG/KG, UNK
     Route: 064
     Dates: start: 20180119, end: 20180119
  2. DESCOVY [Suspect]
     Active Substance: EMTRICITABINE\TENOFOVIR ALAFENAMIDE FUMARATE
     Indication: HIV INFECTION
     Dosage: 225 MG, QD
     Route: 064
  3. DOLUTEGRAVIR [Suspect]
     Active Substance: DOLUTEGRAVIR
     Indication: HIV INFECTION
     Dosage: 50 MG, QD
     Route: 064
  4. ZIDOVUDINE. [Suspect]
     Active Substance: ZIDOVUDINE
     Indication: HIV INFECTION
     Dosage: 2 MG/KG, UNK
     Route: 064
     Dates: start: 20180119, end: 20180119

REACTIONS (11)
  - Foetal exposure during pregnancy [Unknown]
  - Noonan syndrome [Unknown]
  - Congenital thrombocytopenia [Unknown]
  - Mitral face [Unknown]
  - Pulmonary valve stenosis congenital [Unknown]
  - Patent ductus arteriosus [Unknown]
  - Ventricular hypertrophy [Unknown]
  - Tooth development disorder [Unknown]
  - Gastrooesophageal reflux disease [Unknown]
  - Nuchal rigidity [Unknown]
  - Atrial septal defect [Unknown]
